FAERS Safety Report 10668553 (Version 2)
Quarter: 2015Q1

REPORT INFORMATION
  Report Type: Report from Study
  Country: BR (occurrence: BR)
  Receive Date: 20141222
  Receipt Date: 20150219
  Transmission Date: 20150720
  Serious: Yes (Other)
  Sender: FDA-Public Use
  Company Number: BR-BAYER-2014-186351

PATIENT
  Age: 27 Year
  Sex: Female

DRUGS (1)
  1. BETAFERON [Suspect]
     Active Substance: INTERFERON BETA-1B
     Indication: RELAPSING-REMITTING MULTIPLE SCLEROSIS
     Dosage: 1 ML, QOD
     Route: 058
     Dates: start: 2013, end: 2014

REACTIONS (14)
  - VIIth nerve paralysis [Recovered/Resolved with Sequelae]
  - Pain [Recovered/Resolved]
  - Injection site haematoma [Recovering/Resolving]
  - Headache [Recovered/Resolved]
  - Eye movement disorder [Recovered/Resolved with Sequelae]
  - Nervousness [Recovered/Resolved]
  - Muscle twitching [Recovered/Resolved]
  - Muscle twitching [Recovered/Resolved with Sequelae]
  - Insomnia [Recovering/Resolving]
  - Irritability [Recovered/Resolved]
  - Muscle spasms [Recovered/Resolved]
  - Injection site induration [Recovering/Resolving]
  - Injection site discolouration [Recovered/Resolved]
  - Paraesthesia [Recovered/Resolved]

NARRATIVE: CASE EVENT DATE: 2013
